FAERS Safety Report 23991978 (Version 1)
Quarter: 2024Q2

REPORT INFORMATION
  Report Type: Spontaneous
  Country: US (occurrence: US)
  Receive Date: 20240620
  Receipt Date: 20240620
  Transmission Date: 20240716
  Serious: Yes (Other)
  Sender: FDA-Public Use
  Company Number: US-SPECGX-T202401252

PATIENT
  Age: 70 Year
  Sex: Female
  Weight: 41 kg

DRUGS (1)
  1. ACETAMINOPHEN\HYDROCODONE [Suspect]
     Active Substance: ACETAMINOPHEN\HYDROCODONE
     Indication: Pain
     Dosage: UNK (S SUPPOSED TO TAKE 3 OR 4 A DAY EVERY 6 HOURS/SHE TOOK HALF)
     Route: 065

REACTIONS (14)
  - Weight decreased [Unknown]
  - Spinal osteoarthritis [Unknown]
  - Illness [Unknown]
  - Skin lesion [Unknown]
  - Feeling abnormal [Unknown]
  - Dysgeusia [Unknown]
  - Feeding disorder [Unknown]
  - Rotator cuff syndrome [Unknown]
  - Musculoskeletal pain [Unknown]
  - Coccydynia [Unknown]
  - Constipation [Unknown]
  - Dizziness [Unknown]
  - Theft [Unknown]
  - Wrong technique in product usage process [Unknown]
